FAERS Safety Report 7710666-6 (Version None)
Quarter: 2011Q3

REPORT INFORMATION
  Report Type: 
  Country: None (occurrence: None)
  Receive Date: 20110825
  Receipt Date: 20110824
  Transmission Date: 20111222
  Serious: No
  Sender: FDA-Public Use
  Company Number: US-PFIZER INC-2011196884

PATIENT
  Sex: Male

DRUGS (2)
  1. CADUET [Suspect]
     Indication: HYPERTENSION
  2. CADUET [Suspect]
     Indication: BLOOD CHOLESTEROL INCREASED
     Dosage: UNK
     Route: 048
     Dates: start: 20060101

REACTIONS (2)
  - DIZZINESS [None]
  - NAUSEA [None]
